FAERS Safety Report 9146740 (Version 1)
Quarter: 2013Q1

REPORT INFORMATION
  Report Type: Spontaneous
  Country: US (occurrence: None)
  Receive Date: 20130206
  Receipt Date: 20130206
  Transmission Date: 20140127
  Serious: Yes (Death)
  Sender: FDA-Public Use
  Company Number: NSR_00859_2013

PATIENT
  Age: 38 Year
  Sex: Male

DRUGS (8)
  1. LAMOTRIGINE [Suspect]
     Indication: PRODUCT USED FOR UNKNOWN INDICATION
     Dosage: (DF  ORAL)?(UNKNOWN UNTIL NOT CONTINUING)
     Route: 048
  2. BENZODIAZEPINES [Suspect]
     Indication: PRODUCT USED FOR UNKNOWN INDICATION
     Dosage: (DF  ORAL)?(UNKNOWN UNTIL NOT CONTINUING)
     Route: 048
  3. ZIPRASIDONE [Suspect]
     Indication: PRODUCT USED FOR UNKNOWN INDICATION
     Dosage: (DF  ORAL)?(UNKNOWN UNTIL NOT CONTINUING)
     Route: 048
  4. QUETIAPINE [Suspect]
     Indication: PRODUCT USED FOR UNKNOWN INDICATION
     Dosage: (DF  ORAL)?(UNKNOWN UNTIL NOT CONTINUING)
     Route: 048
  5. QUETIAPINE [Suspect]
     Indication: PRODUCT USED FOR UNKNOWN INDICATION
     Dosage: (DF  ORAL)?(UNKNOWN UNTIL NOT CONTINUING)
     Route: 048
  6. DULOXETINE [Suspect]
     Indication: PRODUCT USED FOR UNKNOWN INDICATION
     Dosage: (DF  ORAL)?(UNKNOWN UNTIL NOT CONTINUING)
     Route: 048
  7. DIPHENHYDRAMINE [Suspect]
     Indication: PRODUCT USED FOR UNKNOWN INDICATION
     Dosage: (DF  ORAL)?(UNKNOWN UNTIL NOT CONTINUING)
     Route: 048
  8. MIRTAZAPINE [Suspect]
     Indication: PRODUCT USED FOR UNKNOWN INDICATION
     Dosage: (DF  ORAL)?(UNKNOWN UNTIL NOT CONTINUING)
     Route: 048

REACTIONS (2)
  - Poisoning [None]
  - Completed suicide [None]
